FAERS Safety Report 8896365 (Version 1)
Quarter: 2012Q4

REPORT INFORMATION
  Report Type: Spontaneous
  Country: US (occurrence: None)
  Receive Date: 20121031
  Receipt Date: 20121031
  Transmission Date: 20130627
  Serious: Yes (Death, Hospitalization)
  Sender: FDA-Public Use
  Company Number: US-JNJFOC-20121012625

PATIENT
  Age: 75 Year
  Sex: Male

DRUGS (5)
  1. DECITABINE [Suspect]
     Indication: ACUTE  MYELOID  LEUKAEMIA
     Dosage: 20  mg/m2,  Unknown
  2. MEGESTROL (MEGESTROL) [Concomitant]
  3. OMEPRAZOLE (OMEPRAZOLE) [Concomitant]
  4. MORPHINE SULFATE (MORPHINE SULFATE) [Concomitant]
  5. INSULIN GLARGINE (INSULIN GLARGINE) [Concomitant]

REACTIONS (11)
  - Anaemia [None]
  - Platelet count decreased [None]
  - Sinus tachycardia [None]
  - Acute coronary syndrome [None]
  - Neutropenic sepsis [None]
  - Hypotension [None]
  - Cardiac septal hypertrophy [None]
  - Pneumonia [None]
  - Bone marrow failure [None]
  - Cardiomyopathy [None]
  - Myocarditis [None]
